FAERS Safety Report 5427730-7 (Version None)
Quarter: 2007Q3

REPORT INFORMATION
  Report Type: 
  Country: None (occurrence: None)
  Receive Date: 20070828
  Receipt Date: 20070820
  Transmission Date: 20080115
  Serious: Yes (Other)
  Sender: FDA-Public Use
  Company Number: US-AVENTIS-200715948US

PATIENT
  Age: 31 Year
  Sex: Female

DRUGS (2)
  1. CLOMID [Suspect]
     Indication: OVULATION INDUCTION
  2. CLOMID [Suspect]

REACTIONS (2)
  - BLINDNESS UNILATERAL [None]
  - DRUG INEFFECTIVE [None]
